FAERS Safety Report 7427595-8 (Version None)
Quarter: 2011Q2

REPORT INFORMATION
  Report Type: 
  Country: None (occurrence: None)
  Receive Date: 20110420
  Receipt Date: 20110407
  Transmission Date: 20111010
  Serious: Yes (Other)
  Sender: FDA-Public Use
  Company Number: US-MYLANLABS-2011S1007498

PATIENT
  Age: 25 Year
  Sex: Male

DRUGS (5)
  1. LAMOTRIGINE [Suspect]
     Indication: ACCIDENTAL OVERDOSE
     Dosage: 400 MG/DAY
     Route: 065
  2. LAMOTRIGINE [Suspect]
     Indication: GRAND MAL CONVULSION
     Dosage: 400 MG/DAY
     Route: 065
  3. LAMOTRIGINE [Suspect]
     Dosage: 1600MG OVER 24 HOURS
     Route: 065
  4. LEVETIRACETAM [Concomitant]
     Route: 065
  5. LAMOTRIGINE [Suspect]
     Dosage: 1600MG OVER 24 HOURS
     Route: 065

REACTIONS (2)
  - OCULOGYRIC CRISIS [None]
  - ACCIDENTAL OVERDOSE [None]
